FAERS Safety Report 4627538-6 (Version None)
Quarter: 2005Q2

REPORT INFORMATION
  Report Type: 
  Country: None (occurrence: None)
  Receive Date: 20050405
  Receipt Date: 20050304
  Transmission Date: 20051028
  Serious: Yes (Hospitalization)
  Sender: FDA-Public Use
  Company Number: ABCAG-05-0182

PATIENT
  Age: 82 Year
  Sex: Female
  Weight: 54.4316 kg

DRUGS (4)
  1. ABRAXANE [Suspect]
     Indication: BREAST CANCER METASTATIC
     Dosage: 1 DOSE 153 MG (100 MG/M2), INTRAVENOUS DRIP
     Route: 041
     Dates: start: 20050223, end: 20050223
  2. HERCEPTIN (TRASTUZUMAB) (INJECTION FOR INFUSION) [Concomitant]
  3. SYNTHROID [Concomitant]
  4. PREDNISONE [Concomitant]

REACTIONS (17)
  - ABASIA [None]
  - ASTHENIA [None]
  - BALANCE DISORDER [None]
  - COORDINATION ABNORMAL [None]
  - CSF GLUCOSE DECREASED [None]
  - CSF PROTEIN INCREASED [None]
  - DECREASED APPETITE [None]
  - FATIGUE [None]
  - GENERAL PHYSICAL HEALTH DETERIORATION [None]
  - HEART RATE INCREASED [None]
  - HYPERREFLEXIA [None]
  - METASTASES TO MENINGES [None]
  - MUSCULAR WEAKNESS [None]
  - NAUSEA [None]
  - RETCHING [None]
  - SENSATION OF HEAVINESS [None]
  - TANDEM GAIT TEST ABNORMAL [None]
